FAERS Safety Report 19371106 (Version 4)
Quarter: 2023Q2

REPORT INFORMATION
  Report Type: Spontaneous
  Country: US (occurrence: US)
  Receive Date: 20210603
  Receipt Date: 20230614
  Transmission Date: 20230721
  Serious: Yes (Other)
  Sender: FDA-Public Use
  Company Number: US-SA-SAC20210528000212

PATIENT
  Age: 68 Year
  Sex: Female

DRUGS (1)
  1. AUBAGIO [Suspect]
     Active Substance: TERIFLUNOMIDE
     Indication: Multiple sclerosis
     Dosage: 14 MG, QD
     Route: 048
     Dates: start: 20190221

REACTIONS (5)
  - Multiple sclerosis relapse [Unknown]
  - Balance disorder [Unknown]
  - Fatigue [Unknown]
  - Bladder disorder [Unknown]
  - Dysuria [Unknown]

NARRATIVE: CASE EVENT DATE: 20210401
